FAERS Safety Report 8623906-6 (Version None)
Quarter: 2012Q3

REPORT INFORMATION
  Report Type: 
  Country: None (occurrence: None)
  Receive Date: 20120824
  Receipt Date: 20120824
  Transmission Date: 20120928
  Serious: Yes (Hospitalization)
  Sender: FDA-Public Use
  Company Number: None

PATIENT
  Age: 73 Year
  Sex: Female
  Weight: 63.9572 kg

DRUGS (1)
  1. ZOFRAN [Suspect]
     Indication: NAUSEA
     Dosage: 4 MG IV OR PO EVERY 4 HOURS PRN
     Route: 048
     Dates: start: 20111231, end: 20120101

REACTIONS (3)
  - ISCHAEMIC HEPATITIS [None]
  - SHOCK [None]
  - CARDIOMYOPATHY [None]
